FAERS Safety Report 4641746-X (Version None)
Quarter: 2005Q2

REPORT INFORMATION
  Report Type: 
  Country: None (occurrence: None)
  Receive Date: 20050421
  Receipt Date: 20050401
  Transmission Date: 20051028
  Serious: Yes (Life-Threatening)
  Sender: FDA-Public Use
  Company Number: MED000075

PATIENT
  Age: 40 Year
  Sex: Male

DRUGS (2)
  1. SODIUM CHLORIDE 0.9% [Suspect]
  2. SODIUM CITRATE [Suspect]

REACTIONS (9)
  - CHEST DISCOMFORT [None]
  - DYSPNOEA [None]
  - HYPERHIDROSIS [None]
  - PHARMACEUTICAL PRODUCT COMPLAINT [None]
  - PHARYNGEAL OEDEMA [None]
  - PHARYNGOLARYNGEAL PAIN [None]
  - PROCEDURAL COMPLICATION [None]
  - PRURITUS [None]
  - THROAT IRRITATION [None]
